FAERS Safety Report 9033014 (Version 1)
Quarter: 2013Q1

REPORT INFORMATION
  Report Type: Spontaneous
  Country: GB (occurrence: None)
  Receive Date: 20130110
  Receipt Date: 20130110
  Transmission Date: 20140127
  Serious: Yes (Other)
  Sender: FDA-Public Use
  Company Number: DSA_61732_2013

PATIENT
  Age: 44 Year
  Sex: Female

DRUGS (5)
  1. ENALAPRIL MALEATE (ENALAPRIL MALEATE) [Suspect]
     Indication: HYPERTENSION
     Route: 048
     Dates: start: 20120201
  2. ADALAT LA [Concomitant]
  3. FUROSEMIDE [Concomitant]
  4. LABETALOL HYDROCHLORIDE [Concomitant]
  5. SIMVASTATIN [Concomitant]

REACTIONS (1)
  - Onycholysis [None]
